FAERS Safety Report 9649624 (Version 1)
Quarter: 2013Q4

REPORT INFORMATION
  Report Type: Spontaneous
  Country: CH (occurrence: None)
  Receive Date: 20131025
  Receipt Date: 20131025
  Transmission Date: 20140711
  Serious: Yes (Other)
  Sender: FDA-Public Use
  Company Number: NGX_02017_2013

PATIENT
  Age: 47 Year
  Sex: Female

DRUGS (5)
  1. QUTENZA [Suspect]
     Indication: COMPLEX REGIONAL PAIN SYNDROME
     Dosage: 1 DF 1 X TOPICAL
     Route: 061
     Dates: start: 20130829, end: 20130829
  2. QUTENZA [Suspect]
     Indication: OFF LABEL USE
     Dosage: 1 DF 1 X TOPICAL
     Route: 061
     Dates: start: 20130829, end: 20130829
  3. DAFALGAN [Concomitant]
  4. NOVALGIN [Concomitant]
  5. REDOXON [Concomitant]

REACTIONS (2)
  - Complex regional pain syndrome [None]
  - Condition aggravated [None]
